FAERS Safety Report 13645445 (Version 1)
Quarter: 2017Q2

REPORT INFORMATION
  Report Type: Spontaneous
  Country: US (occurrence: US)
  Receive Date: 20170612
  Receipt Date: 20170612
  Transmission Date: 20170830
  Serious: Yes (Other)
  Sender: FDA-Public Use
  Company Number: PHHY2017US081517

PATIENT
  Age: 57 Year
  Sex: Male

DRUGS (1)
  1. BENZYLPENICILLIN [Suspect]
     Active Substance: PENICILLIN G
     Indication: EYE INFECTION SYPHILITIC
     Dosage: 4000000 U, Q4H
     Route: 042

REACTIONS (3)
  - Cystoid macular oedema [Recovered/Resolved]
  - Condition aggravated [Recovered/Resolved]
  - Drug effect incomplete [Unknown]
